FAERS Safety Report 4292981-4 (Version None)
Quarter: 2004Q1

REPORT INFORMATION
  Report Type: 
  Country: None (occurrence: None)
  Receive Date: 20040212
  Receipt Date: 20030806
  Transmission Date: 20041129
  Serious: No
  Sender: FDA-Public Use
  Company Number: US-GLAXOSMITHKLINE-A0419922A

PATIENT

DRUGS (1)
  1. PAXIL [Suspect]
     Dates: start: 20030716

REACTIONS (2)
  - DIZZINESS [None]
  - HEADACHE [None]
